FAERS Safety Report 6714087-4 (Version None)
Quarter: 2010Q2

REPORT INFORMATION
  Report Type: 
  Country: None (occurrence: None)
  Receive Date: 20100506
  Receipt Date: 20100423
  Transmission Date: 20101027
  Serious: Yes (Hospitalization)
  Sender: FDA-Public Use
  Company Number: US-ABBOTT-10P-163-0640278-00

PATIENT
  Sex: Female
  Weight: 77.18 kg

DRUGS (4)
  1. HUMIRA [Suspect]
     Indication: RHEUMATOID ARTHRITIS
     Dates: start: 20020101
  2. HUMIRA [Suspect]
     Dates: start: 20100317
  3. SPIRIVA [Concomitant]
     Indication: DRUG USE FOR UNKNOWN INDICATION
  4. DECLINE LONG LIST OF MEDICATION [Concomitant]
     Indication: DRUG USE FOR UNKNOWN INDICATION

REACTIONS (2)
  - ARTHRALGIA [None]
  - ARTHROPATHY [None]
